FAERS Safety Report 7384121-X (Version None)
Quarter: 2011Q1

REPORT INFORMATION
  Report Type: 
  Country: None (occurrence: None)
  Receive Date: 20110330
  Receipt Date: 20110322
  Transmission Date: 20110831
  Serious: Yes (Hospitalization)
  Sender: FDA-Public Use
  Company Number: A0919430A

PATIENT
  Age: 62 Year
  Sex: Male

DRUGS (7)
  1. VERAPAMIL [Concomitant]
  2. TRICOR [Concomitant]
  3. ADVAIR DISKUS 100/50 [Suspect]
     Indication: CHRONIC OBSTRUCTIVE PULMONARY DISEASE
     Dosage: 1PUFF TWICE PER DAY
     Route: 055
  4. PROZAC [Concomitant]
  5. CARDURA [Concomitant]
  6. ANDROGEL [Concomitant]
  7. VENTOLIN [Concomitant]

REACTIONS (2)
  - PRODUCT QUALITY ISSUE [None]
  - RESPIRATORY DISORDER [None]
